FAERS Safety Report 14746171 (Version 1)
Quarter: 2018Q2

REPORT INFORMATION
  Report Type: Spontaneous
  Country: PL (occurrence: PL)
  Receive Date: 20180411
  Receipt Date: 20180411
  Transmission Date: 20180711
  Serious: Yes (Life-Threatening, Hospitalization)
  Sender: FDA-Public Use
  Company Number: PL-FRESENIUS KABI-FK201804291

PATIENT
  Age: 7 Month
  Sex: Female

DRUGS (1)
  1. GLUCOSE 5% [Suspect]
     Active Substance: DEXTROSE
     Indication: DEHYDRATION
     Route: 042
     Dates: start: 20170213, end: 20170213

REACTIONS (7)
  - Musculoskeletal stiffness [Recovering/Resolving]
  - Hypotonia [Recovering/Resolving]
  - Skin lesion [Recovering/Resolving]
  - Loss of consciousness [Recovering/Resolving]
  - Contusion [Recovering/Resolving]
  - Bradycardia [Recovering/Resolving]
  - Apnoea [Recovering/Resolving]

NARRATIVE: CASE EVENT DATE: 20170213
